FAERS Safety Report 7271296-6 (Version None)
Quarter: 2011Q1

REPORT INFORMATION
  Report Type: 
  Country: None (occurrence: None)
  Receive Date: 20110203
  Receipt Date: 20110127
  Transmission Date: 20110831
  Serious: Yes (Death)
  Sender: FDA-Public Use
  Company Number: DE-BIOGENIDEC-2011BI002508

PATIENT
  Age: 29 Year
  Sex: Female

DRUGS (2)
  1. ANTIPYRETIC PAINKILLER [Concomitant]
     Indication: PROPHYLAXIS
  2. AVONEX [Suspect]
     Indication: RELAPSING-REMITTING MULTIPLE SCLEROSIS
     Route: 030
     Dates: start: 20040101, end: 20100101

REACTIONS (1)
  - BRAIN NEOPLASM [None]
